FAERS Safety Report 15596227 (Version 2)
Quarter: 2018Q4

REPORT INFORMATION
  Report Type: Spontaneous
  Country: GB (occurrence: GB)
  Receive Date: 20181108
  Receipt Date: 20181116
  Transmission Date: 20190205
  Serious: Yes (Other)
  Sender: FDA-Public Use
  Company Number: GB-TEVA-2018-GB-972215

PATIENT
  Age: 78 Year
  Sex: Female
  Weight: 75 kg

DRUGS (4)
  1. ALENDRONIC ACID [Suspect]
     Active Substance: ALENDRONIC ACID
     Route: 065
     Dates: start: 20180725
  2. CANDESARTAN. [Concomitant]
     Active Substance: CANDESARTAN
     Dosage: 1 DOSAGE FORMS DAILY;
     Route: 065
     Dates: start: 20170725
  3. AMITRIPTYLINE HYDROCHLORIDE. [Concomitant]
     Active Substance: AMITRIPTYLINE HYDROCHLORIDE
     Dosage: 1-2 EACH NIGHT
     Route: 065
     Dates: start: 20180718, end: 20180805
  4. COCODAMOL [Concomitant]
     Active Substance: ACETAMINOPHEN\CODEINE PHOSPHATE
     Dosage: TAKE 1 OR 2 4 TIMES/DAY
     Route: 065
     Dates: start: 20180710, end: 20180717

REACTIONS (1)
  - Fractured sacrum [Recovering/Resolving]

NARRATIVE: CASE EVENT DATE: 20181009
